FAERS Safety Report 4293034-1 (Version None)
Quarter: 2004Q1

REPORT INFORMATION
  Report Type: 
  Country: None (occurrence: None)
  Receive Date: 20040210
  Receipt Date: 20040129
  Transmission Date: 20041129
  Serious: Yes (Other)
  Sender: FDA-Public Use
  Company Number: NSADSS2001008220

PATIENT
  Age: 61 Year
  Sex: Male
  Weight: 88.4514 kg

DRUGS (7)
  1. REMICADE [Suspect]
     Indication: RHEUMATOID ARTHRITIS
     Dosage: INTRAVENOUS DRIP
     Route: 041
     Dates: start: 20001222, end: 20001222
  2. METHOTREXATE SODIUM [Concomitant]
  3. VIOXX [Concomitant]
  4. DARVOCET (PROPACET) [Concomitant]
  5. MULTIVITAMIN [Concomitant]
  6. CALCIUM (CALCIUM) [Concomitant]
  7. FOLIC ACID [Concomitant]

REACTIONS (3)
  - DRUG EFFECT DECREASED [None]
  - FATIGUE [None]
  - PROSTATE CANCER [None]
